FAERS Safety Report 9529419 (Version 1)
Quarter: 2013Q3

REPORT INFORMATION
  Report Type: Spontaneous
  Country: BR (occurrence: BR)
  Receive Date: 20130917
  Receipt Date: 20130917
  Transmission Date: 20140515
  Serious: Yes (Other)
  Sender: FDA-Public Use
  Company Number: BR-PFIZER INC-2013254547

PATIENT
  Age: 63 Year
  Sex: Female
  Weight: 63 kg

DRUGS (3)
  1. XALATAN [Suspect]
     Indication: INTRAOCULAR PRESSURE INCREASED
     Dosage: 3 UG (1 DROP IN BOTH EYES), 1X/DAY
     Route: 047
     Dates: start: 2012, end: 2012
  2. COSOPT [Concomitant]
     Indication: INTRAOCULAR PRESSURE INCREASED
     Dosage: 1 DROP IN BOTH EYES, 3X/DAY
     Dates: start: 20120902
  3. NEVANAC [Concomitant]
     Indication: INTRAOCULAR PRESSURE INCREASED
     Dosage: 1 DROP IN BOTH EYES, 3X/DAY
     Dates: start: 20130702

REACTIONS (2)
  - Eye oedema [Not Recovered/Not Resolved]
  - Intraocular pressure increased [Not Recovered/Not Resolved]
